APPROVED DRUG PRODUCT: NILANDRON
Active Ingredient: NILUTAMIDE
Strength: 50MG
Dosage Form/Route: TABLET;ORAL
Application: N020169 | Product #001
Applicant: ADVANZ PHARMA (US) CORP
Approved: Sep 19, 1996 | RLD: No | RS: No | Type: DISCN